FAERS Safety Report 4906941-0 (Version None)
Quarter: 2006Q1

REPORT INFORMATION
  Report Type: 
  Country: None (occurrence: None)
  Receive Date: 20060209
  Receipt Date: 20060203
  Transmission Date: 20060701
  Serious: Yes (Congenital Anomaly)
  Sender: FDA-Public Use
  Company Number: US-GILEAD-2006-0009190

PATIENT
  Sex: Female

DRUGS (8)
  1. TRUVADA [Suspect]
     Route: 064
     Dates: start: 20051026, end: 20060115
  2. LAMIVUDINE [Concomitant]
     Route: 064
     Dates: start: 20050921, end: 20051005
  3. STAVUDINE [Concomitant]
     Route: 064
     Dates: start: 20050921, end: 20051005
  4. ATAZANAVIR SULFATE [Concomitant]
     Route: 064
     Dates: start: 20051026, end: 20060115
  5. ATAZANAVIR SULFATE [Concomitant]
     Route: 064
     Dates: start: 20050921, end: 20051026
  6. EPZICOM [Concomitant]
     Route: 064
     Dates: start: 20051005, end: 20051026
  7. RITONAVIR [Concomitant]
     Route: 064
     Dates: start: 20051026, end: 20060115
  8. ZIDOVUDINE [Concomitant]
     Route: 064
     Dates: start: 20060115, end: 20060115

REACTIONS (4)
  - DRUG EXPOSURE DURING PREGNANCY [None]
  - FALLOT'S TETRALOGY [None]
  - PYELECTASIA [None]
  - TRISOMY 21 [None]
